FAERS Safety Report 25235702 (Version 2)
Quarter: 2025Q2

REPORT INFORMATION
  Report Type: Spontaneous
  Country: US (occurrence: US)
  Receive Date: 20250424
  Receipt Date: 20250428
  Transmission Date: 20250716
  Serious: Yes (Other)
  Sender: PFIZER
  Company Number: US-PFIZER INC-202500085514

PATIENT
  Age: 67 Year
  Sex: Female

DRUGS (11)
  1. IBRANCE [Suspect]
     Active Substance: PALBOCICLIB
     Route: 048
     Dates: start: 20241207
  2. ALPRAZOLAM [Concomitant]
     Active Substance: ALPRAZOLAM
  3. CALCIUM [Concomitant]
     Active Substance: CALCIUM
  4. CRESTOR [Concomitant]
     Active Substance: ROSUVASTATIN CALCIUM
  5. HYZAAR [Concomitant]
     Active Substance: HYDROCHLOROTHIAZIDE\LOSARTAN POTASSIUM
  6. LAMICTAL [Concomitant]
     Active Substance: LAMOTRIGINE
  7. LETROZOLE [Concomitant]
     Active Substance: LETROZOLE
  8. LOSARTAN [Concomitant]
     Active Substance: LOSARTAN
  9. LYRICA [Concomitant]
     Active Substance: PREGABALIN
  10. MAXZIDE [Concomitant]
     Active Substance: HYDROCHLOROTHIAZIDE\TRIAMTERENE
  11. VITAMINS NOS [Concomitant]
     Active Substance: VITAMINS

REACTIONS (1)
  - Pneumonia [Unknown]
